FAERS Safety Report 24002012 (Version 2)
Quarter: 2024Q3

REPORT INFORMATION
  Report Type: Report from Study
  Country: CA (occurrence: CA)
  Receive Date: 20240622
  Receipt Date: 20240710
  Transmission Date: 20241017
  Serious: Yes (Hospitalization, Other)
  Sender: ABBVIE
  Company Number: CA-ABBVIE-5808459

PATIENT
  Age: 58 Year
  Sex: Male

DRUGS (1)
  1. RINVOQ [Suspect]
     Active Substance: UPADACITINIB
     Indication: Colitis ulcerative
     Dosage: LAST ADMIN- 2024
     Route: 048
     Dates: start: 20240106

REACTIONS (2)
  - Haematochezia [Unknown]
  - Pain [Unknown]

NARRATIVE: CASE EVENT DATE: 20240601
